FAERS Safety Report 4659151-9 (Version None)
Quarter: 2005Q2

REPORT INFORMATION
  Report Type: 
  Country: None (occurrence: None)
  Receive Date: 20050511
  Receipt Date: 20050502
  Transmission Date: 20051028
  Serious: Yes (Other)
  Sender: FDA-Public Use
  Company Number: US-JNJFOC-20050500822

PATIENT
  Sex: Female

DRUGS (5)
  1. LEVAQUIN [Suspect]
     Route: 049
  2. LEVAQUIN [Suspect]
     Route: 049
  3. THALOMID [Concomitant]
     Indication: MULTIPLE MYELOMA
     Route: 049
  4. DEXAMETHASONE [Concomitant]
  5. COUMADIN [Concomitant]
     Route: 049

REACTIONS (2)
  - MULTIPLE MYELOMA [None]
  - TENDON DISORDER [None]
